FAERS Safety Report 10194260 (Version 1)
Quarter: 2014Q2

REPORT INFORMATION
  Report Type: Report from Study
  Country: DE (occurrence: DE)
  Receive Date: 20140526
  Receipt Date: 20140526
  Transmission Date: 20141212
  Serious: Yes (Hospitalization)
  Sender: FDA-Public Use
  Company Number: DE-AMGEN INC.-DEUCT2014038315

PATIENT
  Age: 17 Year
  Sex: Female
  Weight: 73 kg

DRUGS (5)
  1. ETANERCEPT [Suspect]
     Indication: PRODUCT USED FOR UNKNOWN INDICATION
     Dosage: UNK
     Route: 065
     Dates: start: 20131118, end: 20140122
  2. METHOTREXATE SODIUM [Concomitant]
     Dosage: 10 MG, WEEKLY
     Dates: start: 20140306
  3. HUMIRA [Concomitant]
     Dosage: 40 MG, EVERY 2 WEEKS
     Dates: start: 20140306
  4. FOLIC ACID [Concomitant]
     Indication: PROPHYLAXIS
     Dosage: UNK
     Route: 048
     Dates: start: 20140306
  5. PANTOPRAZOLE [Concomitant]
     Indication: PROPHYLAXIS
     Dosage: UNK
     Route: 048
     Dates: start: 20140306

REACTIONS (1)
  - Osteomyelitis [Recovered/Resolved]
